FAERS Safety Report 15048540 (Version 1)
Quarter: 2018Q2

REPORT INFORMATION
  Report Type: Spontaneous
  Country: DE (occurrence: DE)
  Receive Date: 20180622
  Receipt Date: 20180622
  Transmission Date: 20180711
  Serious: Yes (Hospitalization)
  Sender: FDA-Public Use
  Company Number: DE-TEVA-2018-DE-908595

PATIENT
  Age: 78 Year
  Sex: Female

DRUGS (8)
  1. VENLAFAXINE [Suspect]
     Active Substance: VENLAFAXINE HYDROCHLORIDE
     Dosage: 1-0-1-0
     Route: 065
  2. LORMETAZEPAM [Suspect]
     Active Substance: LORMETAZEPAM
     Dosage: 0-0-0.5-0
     Route: 065
  3. SPASMEX 30MG [Concomitant]
     Dosage: 1-0-1-0
     Route: 065
  4. ASS 100 [Concomitant]
     Active Substance: ASPIRIN
     Dosage: 100.1-0-0-0
     Route: 065
  5. PRAVASTATIN. [Concomitant]
     Active Substance: PRAVASTATIN
     Dosage: 0-0-1-0
     Route: 065
  6. AMLODIPINE [Suspect]
     Active Substance: AMLODIPINE BESYLATE
     Dosage: 1-0-1-0
     Route: 065
  7. METOPROLOL. [Suspect]
     Active Substance: METOPROLOL
     Dosage: 0.5-0-0.5-0
     Route: 065
  8. TRIMIPRAMINE [Suspect]
     Active Substance: TRIMIPRAMINE
     Dosage: NK MG, NK, DROP.
     Route: 065

REACTIONS (3)
  - Balance disorder [Unknown]
  - Urinary incontinence [Unknown]
  - Fall [Unknown]
